FAERS Safety Report 9114332 (Version 1)
Quarter: 2013Q1

REPORT INFORMATION
  Report Type: Spontaneous
  Country: FI (occurrence: FI)
  Receive Date: 20130208
  Receipt Date: 20130208
  Transmission Date: 20140127
  Serious: Yes (Hospitalization)
  Sender: FDA-Public Use
  Company Number: FI-009507513-1210FIN008129

PATIENT
  Age: 42 Year
  Sex: Male

DRUGS (2)
  1. EZETROL [Suspect]
     Dosage: UNK
     Route: 048
     Dates: start: 2010, end: 2012
  2. PRAVASTATIN SODIUM [Suspect]
     Dosage: 40MG DAILY
     Dates: start: 2010, end: 2012

REACTIONS (3)
  - Hepatic necrosis [Recovering/Resolving]
  - Ageusia [Recovering/Resolving]
  - Dysgeusia [Recovering/Resolving]
